FAERS Safety Report 10146121 (Version 1)
Quarter: 2014Q2

REPORT INFORMATION
  Report Type: Spontaneous
  Country: US (occurrence: None)
  Receive Date: 20140430
  Receipt Date: 20140430
  Transmission Date: 20141212
  Serious: Yes (Other)
  Sender: FDA-Public Use
  Company Number: None

PATIENT
  Age: 58 Year
  Sex: Female
  Weight: 103.2 kg

DRUGS (1)
  1. XELJANZ 5 MG PFIZER [Suspect]
     Route: 048
     Dates: start: 201310

REACTIONS (1)
  - Pain in extremity [None]
